FAERS Safety Report 7690574-X (Version None)
Quarter: 2011Q3

REPORT INFORMATION
  Report Type: 
  Country: None (occurrence: None)
  Receive Date: 20110812
  Receipt Date: 20110729
  Transmission Date: 20111222
  Serious: Yes (Life-Threatening)
  Sender: FDA-Public Use
  Company Number: LTI2011A00230

PATIENT
  Age: 74 Year
  Sex: Male

DRUGS (7)
  1. BIPRETERAX (INDAPAMIDE, PERINDOPRIL ERBUMINE) [Suspect]
     Dosage: (D) ORAL
     Route: 048
  2. LESCOL [Suspect]
     Dosage: (D) ORAL
     Route: 048
  3. ACTOS [Suspect]
     Indication: TYPE 2 DIABETES MELLITUS
     Dosage: 15 MG (15 MG,1 IN 1 D) ORAL ; 30 MG (30 MG,1 IN 1 D) ORAL
     Route: 048
     Dates: start: 20041206, end: 20091230
  4. ACTOS [Suspect]
     Indication: TYPE 2 DIABETES MELLITUS
     Dosage: 15 MG (15 MG,1 IN 1 D) ORAL ; 30 MG (30 MG,1 IN 1 D) ORAL
     Route: 048
     Dates: start: 20071030, end: 20101207
  5. PLAVIX [Suspect]
     Dosage: (D) ORAL
     Route: 048
  6. REPAGLINIDE [Suspect]
     Indication: TYPE 2 DIABETES MELLITUS
     Dosage: 6 MG (2 MG,3 IN 1 D) ORAL
     Route: 048
  7. GLUCOPHAGE [Suspect]
     Indication: TYPE 2 DIABETES MELLITUS
     Dosage: (D) ORAL
     Route: 048

REACTIONS (4)
  - POLLAKIURIA [None]
  - BLADDER CANCER [None]
  - HAEMATURIA [None]
  - DYSURIA [None]
